FAERS Safety Report 20470998 (Version 2)
Quarter: 2022Q1

REPORT INFORMATION
  Report Type: Spontaneous
  Country: US (occurrence: US)
  Receive Date: 20220214
  Receipt Date: 20220314
  Transmission Date: 20220423
  Serious: Yes (Hospitalization, Other)
  Sender: FDA-Public Use
  Company Number: US-ABBVIE-22K-163-4276636-00

PATIENT
  Age: 17 Year
  Sex: Male
  Weight: 44 kg

DRUGS (11)
  1. PAXLOVID [Suspect]
     Active Substance: NIRMATRELVIR\RITONAVIR
     Indication: COVID-19
     Route: 048
     Dates: start: 20220126, end: 20220130
  2. PAXLOVID [Suspect]
     Active Substance: NIRMATRELVIR\RITONAVIR
     Indication: COVID-19
     Route: 048
     Dates: start: 20220126, end: 20220130
  3. PAXLOVID [Suspect]
     Active Substance: NIRMATRELVIR\RITONAVIR
     Indication: COVID-19
  4. METHOTREXATE [Suspect]
     Active Substance: METHOTREXATE
     Indication: Acute lymphocytic leukaemia
     Route: 037
     Dates: start: 20220124, end: 20220124
  5. METHOTREXATE [Suspect]
     Active Substance: METHOTREXATE
     Dosage: OVER 24 HOURS
     Route: 042
     Dates: start: 20220124, end: 20220125
  6. VINCRISTINE [Concomitant]
     Active Substance: VINCRISTINE
     Indication: Product used for unknown indication
     Dates: start: 20220124, end: 20220124
  7. MERCAPTOPURINE [Concomitant]
     Active Substance: MERCAPTOPURINE
     Indication: Product used for unknown indication
     Dates: start: 20220124
  8. ONDANSETRON [Concomitant]
     Active Substance: ONDANSETRON
     Indication: Product used for unknown indication
     Dates: start: 20220124, end: 20220203
  9. CEFTRIAXONE [Concomitant]
     Active Substance: CEFTRIAXONE
     Indication: Product used for unknown indication
     Dates: start: 20220125, end: 20220126
  10. OXYCODONE [Concomitant]
     Active Substance: OXYCODONE
     Indication: Product used for unknown indication
     Dates: start: 20220124, end: 20220125
  11. ACETAMINOPHEN [Concomitant]
     Active Substance: ACETAMINOPHEN
     Indication: Product used for unknown indication
     Dates: start: 20220124, end: 20220126

REACTIONS (24)
  - Muscle twitching [Unknown]
  - Paraesthesia [Unknown]
  - Dysarthria [Recovering/Resolving]
  - Facial paresis [Unknown]
  - Cerebrovascular accident [Unknown]
  - Neurotoxicity [Unknown]
  - Posterior reversible encephalopathy syndrome [Unknown]
  - Facial paralysis [Recovering/Resolving]
  - Hemiparesis [Unknown]
  - Liver function test increased [Unknown]
  - Drug clearance decreased [Unknown]
  - Weight decreased [Unknown]
  - Headache [Recovering/Resolving]
  - Decreased appetite [Unknown]
  - Respiratory tract congestion [Unknown]
  - Dysphagia [Unknown]
  - Hypoaesthesia [Recovered/Resolved]
  - Grip strength decreased [Recovering/Resolving]
  - Dyskinesia [Unknown]
  - Tongue disorder [Unknown]
  - Dysphonia [Unknown]
  - Unevaluable event [Unknown]
  - Nausea [Recovering/Resolving]
  - Vomiting [Recovering/Resolving]

NARRATIVE: CASE EVENT DATE: 20220101
